FAERS Safety Report 19770097 (Version 1)
Quarter: 2021Q3

REPORT INFORMATION
  Report Type: Spontaneous
  Country: US (occurrence: US)
  Receive Date: 20210831
  Receipt Date: 20210831
  Transmission Date: 20211014
  Serious: Yes (Death)
  Sender: FDA-Public Use
  Company Number: None

PATIENT
  Age: 64 Year
  Sex: Male
  Weight: 68 kg

DRUGS (1)
  1. TOCILIZUMAB (TOCILIZUMAB 20MG/ML INJ,SOLN,10ML) [Suspect]
     Active Substance: TOCILIZUMAB
     Indication: UPPER RESPIRATORY TRACT INFECTION
     Route: 042
     Dates: start: 20210813, end: 20210813

REACTIONS (7)
  - Shock [None]
  - Hepatic enzyme increased [None]
  - Dyspnoea [None]
  - Diarrhoea [None]
  - Acute kidney injury [None]
  - Death [None]
  - Transaminases increased [None]

NARRATIVE: CASE EVENT DATE: 20210824
